FAERS Safety Report 7584983-7 (Version None)
Quarter: 2011Q2

REPORT INFORMATION
  Report Type: 
  Country: None (occurrence: None)
  Receive Date: 20110630
  Receipt Date: 20110628
  Transmission Date: 20111010
  Serious: Yes (Death)
  Sender: FDA-Public Use
  Company Number: NL-ABBOTT-10P-114-0658672-00

PATIENT
  Sex: Male
  Weight: 80 kg

DRUGS (13)
  1. ALPRAZOLAM [Concomitant]
     Indication: PRODUCT USED FOR UNKNOWN INDICATION
     Route: 048
  2. TAMSULOSIN HCL [Concomitant]
     Indication: PRODUCT USED FOR UNKNOWN INDICATION
     Dosage: ONCE DAILY IN EVENING
     Route: 048
  3. VENLAFAXINE [Concomitant]
     Indication: PRODUCT USED FOR UNKNOWN INDICATION
     Route: 048
  4. BICALUTAMIDE [Concomitant]
     Indication: PRODUCT USED FOR UNKNOWN INDICATION
     Route: 048
  5. FLUTICASON [Concomitant]
     Indication: PRODUCT USED FOR UNKNOWN INDICATION
     Dosage: 250 MICROGRAM/DOSE 60 DISKUS AS NEEDED
     Route: 055
  6. CHLORAMFENICOL EYE OINTMENT [Concomitant]
     Indication: PRODUCT USED FOR UNKNOWN INDICATION
     Dosage: 10MG/G TUBE 5G
  7. DUTASTERIDE [Concomitant]
     Indication: PRODUCT USED FOR UNKNOWN INDICATION
     Dosage: ONCE DAILY IN EVENING
     Route: 048
  8. ENALAPRIL MALEATE [Concomitant]
     Indication: PRODUCT USED FOR UNKNOWN INDICATION
     Dosage: ONCE DAILY IN EVENING
     Route: 048
  9. LORMETAZEPAM [Concomitant]
     Indication: PRODUCT USED FOR UNKNOWN INDICATION
     Dosage: ONCE DAILY IN EVENING
     Route: 048
  10. LUPRON DEPOT [Suspect]
     Indication: PROSTATE CANCER
     Route: 058
     Dates: start: 20091101, end: 20110525
  11. LACTULOSE SIROP 670 MG/ML [Concomitant]
     Indication: PRODUCT USED FOR UNKNOWN INDICATION
     Dosage: 500 MG/G
     Route: 048
  12. FENTANYL PLASTER (GENERIC+DUROGESIC) [Concomitant]
     Indication: PRODUCT USED FOR UNKNOWN INDICATION
     Dosage: 12 MICROGRAM/HR
  13. ATORVASTATIN [Concomitant]
     Indication: PRODUCT USED FOR UNKNOWN INDICATION
     Dosage: ONCE DAILY IN EVENING
     Route: 048

REACTIONS (2)
  - HOT FLUSH [None]
  - DEATH [None]
